FAERS Safety Report 24091569 (Version 1)
Quarter: 2024Q3

REPORT INFORMATION
  Report Type: Spontaneous
  Country: ID (occurrence: ID)
  Receive Date: 20240715
  Receipt Date: 20240715
  Transmission Date: 20241016
  Serious: Yes (Death)
  Sender: NOVARTIS
  Company Number: ID-002147023-NVSC2024ID145423

PATIENT
  Sex: Female

DRUGS (1)
  1. RIBOCICLIB [Suspect]
     Active Substance: RIBOCICLIB
     Indication: Product used for unknown indication
     Dosage: 600 MG, QD ((2 CYCLES))
     Route: 065

REACTIONS (1)
  - Death [Fatal]
